FAERS Safety Report 9647162 (Version 1)
Quarter: 2013Q4

REPORT INFORMATION
  Report Type: Spontaneous
  Country: US (occurrence: US)
  Receive Date: 20131027
  Receipt Date: 20131027
  Transmission Date: 20140711
  Serious: Yes (Death, Other)
  Sender: FDA-Public Use
  Company Number: US-NAPPMUNDI-USA-2013-0105765

PATIENT
  Age: 21 Year
  Sex: Female

DRUGS (2)
  1. OXYCODONE HYDROCHLORIDE (SIMILAR TO NDA 22-272) [Suspect]
     Indication: DRUG ABUSE
  2. ALCOHOL [Suspect]
     Indication: DRUG ABUSE

REACTIONS (3)
  - Accidental overdose [Fatal]
  - Substance abuse [Unknown]
  - Somnolence [Unknown]
